FAERS Safety Report 4588739-9 (Version None)
Quarter: 2005Q1

REPORT INFORMATION
  Report Type: 
  Country: None (occurrence: None)
  Receive Date: 20050214
  Receipt Date: 20050214
  Transmission Date: 20050727
  Serious: Yes (Other)
  Sender: FDA-Public Use
  Company Number: None

PATIENT
  Age: 57 Year
  Sex: Female

DRUGS (2)
  1. TOPROL-XL [Suspect]
     Indication: SUPRAVENTRICULAR TACHYCARDIA
     Dosage: TAKE 1 TABLET TWICE DAILY
     Dates: start: 20050116, end: 20050126
  2. TAMBOCOR [Concomitant]

REACTIONS (4)
  - PHARMACEUTICAL PRODUCT COMPLAINT [None]
  - RASH MORBILLIFORM [None]
  - SKIN REACTION [None]
  - URTICARIA [None]
